FAERS Safety Report 23352358 (Version 2)
Quarter: 2024Q1

REPORT INFORMATION
  Report Type: Spontaneous
  Country: RS (occurrence: RS)
  Receive Date: 20231229
  Receipt Date: 20240116
  Transmission Date: 20240409
  Serious: Yes (Hospitalization, Disabling, Other)
  Sender: FDA-Public Use
  Company Number: RS-SA-SAC20231130000446

PATIENT

DRUGS (3)
  1. LARONIDASE [Suspect]
     Active Substance: LARONIDASE
     Indication: Mucopolysaccharidosis I
     Dosage: 2000 U, QW(100 UNITS/ML-1X5ML, 4 AMPULES WEEKLY)
     Route: 041
     Dates: start: 20130130, end: 20231109
  2. CHLOROPYRAMINE HYDROCHLORIDE [Concomitant]
     Active Substance: CHLOROPYRAMINE HYDROCHLORIDE
     Indication: Premedication
     Dosage: 1 DF(1 AMPOULE/20MG/2ML)
     Dates: start: 20130130, end: 20231109
  3. METHYLPREDNISOLONE SODIUM SUCCINATE [Concomitant]
     Active Substance: METHYLPREDNISOLONE SODIUM SUCCINATE
     Indication: Premedication
     Dosage: 40 MG
     Dates: start: 20130130, end: 20231109

REACTIONS (7)
  - Respiratory failure [Recovering/Resolving]
  - Oxygen saturation decreased [Recovering/Resolving]
  - Respiratory failure [Recovering/Resolving]
  - Hypoventilation [Recovering/Resolving]
  - Hypoxia [Recovering/Resolving]
  - Disease progression [Recovering/Resolving]
  - Drug ineffective [Unknown]

NARRATIVE: CASE EVENT DATE: 20220101
